FAERS Safety Report 6081087-X (Version None)
Quarter: 2009Q1

REPORT INFORMATION
  Report Type: 
  Country: None (occurrence: None)
  Receive Date: 20090114
  Receipt Date: 20071017
  Transmission Date: 20090719
  Serious: Yes (Hospitalization)
  Sender: FDA-Public Use
  Company Number: 268536

PATIENT
  Age: 76 Year
  Sex: Female

DRUGS (1)
  1. NOVOLIN 70/30 [Suspect]
     Indication: TYPE 1 DIABETES MELLITUS
     Dosage: 35 LU, BID, SUBCUTANEOUS
     Route: 058
     Dates: start: 20070101

REACTIONS (1)
  - BLOOD GLUCOSE DECREASED [None]
